FAERS Safety Report 14361468 (Version 2)
Quarter: 2018Q1

REPORT INFORMATION
  Report Type: Report from Study
  Country: None (occurrence: US)
  Receive Date: 20180108
  Receipt Date: 20180306
  Transmission Date: 20180509
  Serious: Yes (Hospitalization)
  Sender: FDA-Public Use
  Company Number: US-ABBVIE-18K-163-2213781-00

PATIENT
  Age: 67 Year
  Sex: Female

DRUGS (1)
  1. HUMIRA [Suspect]
     Active Substance: ADALIMUMAB
     Indication: RHEUMATOID ARTHRITIS
     Route: 058
     Dates: start: 20170711

REACTIONS (9)
  - Neck pain [Unknown]
  - Headache [Unknown]
  - Haemoglobin decreased [Recovering/Resolving]
  - Mobility decreased [Unknown]
  - Anaemia [Unknown]
  - Sciatica [Unknown]
  - Peripheral swelling [Unknown]
  - Pain [Unknown]
  - Hypophagia [Unknown]

NARRATIVE: CASE EVENT DATE: 2017
